FAERS Safety Report 8544989-8 (Version None)
Quarter: 2012Q3

REPORT INFORMATION
  Report Type: 
  Country: None (occurrence: None)
  Receive Date: 20120727
  Receipt Date: 20120719
  Transmission Date: 20120928
  Serious: Yes (Other)
  Sender: FDA-Public Use
  Company Number: US-GLAXOSMITHKLINE-A0985270A

PATIENT
  Age: 31 Year
  Sex: Female

DRUGS (3)
  1. LAMOTRIGINE [Suspect]
     Indication: EPILEPSY
     Route: 065
  2. ORTHO CYCLEN-28 [Concomitant]
  3. LAMICTAL XR [Suspect]
     Indication: EPILEPSY
     Dosage: 400MG PER DAY
     Route: 048
     Dates: start: 20120713

REACTIONS (12)
  - CONVULSION [None]
  - HEART RATE INCREASED [None]
  - INSOMNIA [None]
  - MOTOR DYSFUNCTION [None]
  - VISION BLURRED [None]
  - DIPLOPIA [None]
  - PALPITATIONS [None]
  - ANGER [None]
  - HYPERTENSION [None]
  - VERTIGO [None]
  - CONTUSION [None]
  - DYSSTASIA [None]
